FAERS Safety Report 9962191 (Version 1)
Quarter: 2014Q1

REPORT INFORMATION
  Report Type: Report from Study
  Country: US (occurrence: US)
  Receive Date: 20140305
  Receipt Date: 20140305
  Transmission Date: 20141002
  Serious: No
  Sender: FDA-Public Use
  Company Number: US-ABBVIE-13P-163-1116161-00

PATIENT
  Age: 43 Year
  Sex: Female

DRUGS (1)
  1. HUMIRA [Suspect]
     Indication: ANKYLOSING SPONDYLITIS
     Dates: start: 20130620

REACTIONS (4)
  - Pruritus [Recovered/Resolved]
  - Urticaria [Recovering/Resolving]
  - Injection site erythema [Recovering/Resolving]
  - Frustration [Unknown]
